FAERS Safety Report 19201393 (Version 1)
Quarter: 2021Q2

REPORT INFORMATION
  Report Type: Report from Study
  Country: US (occurrence: US)
  Receive Date: 20210430
  Receipt Date: 20210430
  Transmission Date: 20210717
  Serious: Yes (Hospitalization)
  Sender: FDA-Public Use
  Company Number: US-BAYER-2021-129632

PATIENT
  Age: 89 Year
  Sex: Male

DRUGS (1)
  1. XOFIGO [Suspect]
     Active Substance: RADIUM RA-223 DICHLORIDE
     Indication: HORMONE-REFRACTORY PROSTATE CANCER
     Dosage: 91.40 ?CI, Q4WK
     Route: 042
     Dates: start: 20210106, end: 20210106

REACTIONS (2)
  - Hospitalisation [Unknown]
  - Illness [Unknown]
